FAERS Safety Report 7834174-7 (Version None)
Quarter: 2011Q4

REPORT INFORMATION
  Report Type: 
  Country: None (occurrence: None)
  Receive Date: 20111024
  Receipt Date: 20111013
  Transmission Date: 20120403
  Serious: Yes (Other)
  Sender: FDA-Public Use
  Company Number: PHFR2011GB04669

PATIENT
  Sex: Male

DRUGS (4)
  1. ATENOLOL [Concomitant]
     Indication: TACHYCARDIA
     Dosage: 50 MG/DAY
     Route: 048
     Dates: start: 20110501
  2. HYOSCINE HYDROBROMIDE [Concomitant]
     Indication: SALIVARY HYPERSECRETION
     Dosage: 600 UG/DAY
     Route: 048
  3. CLOZARIL [Suspect]
     Indication: SCHIZOPHRENIA
     Dosage: 250 MG/DAY
     Route: 048
     Dates: start: 20110208
  4. LANSOPRAZOLE [Concomitant]
     Indication: DYSPEPSIA
     Dosage: 30 MG/DAY
     Dates: start: 20110801

REACTIONS (2)
  - HAEMOGLOBIN INCREASED [None]
  - PLATELET COUNT DECREASED [None]
